FAERS Safety Report 4377279-8 (Version None)
Quarter: 2004Q2

REPORT INFORMATION
  Report Type: 
  Country: None (occurrence: None)
  Receive Date: 20040615
  Receipt Date: 20040604
  Transmission Date: 20050107
  Serious: Yes (Hospitalization)
  Sender: FDA-Public Use
  Company Number: US-JNJFOC-20040502569

PATIENT
  Sex: Female
  Weight: 96.62 kg

DRUGS (12)
  1. REMICADE [Suspect]
     Indication: CROHN'S DISEASE
     Dosage: TEMPORARILY HELD PENDING RECOVERY
     Route: 042
  2. MERCAPTOPURINE [Suspect]
     Indication: CROHN'S DISEASE
     Dosage: HELD TEMPORARILY
     Route: 049
  3. PREVACID [Concomitant]
  4. LIBRAX [Concomitant]
  5. LIBRAX [Concomitant]
  6. FOLIC ACID [Concomitant]
  7. VITAMIN B-12 [Concomitant]
  8. ALLERGY SHOTS [Concomitant]
  9. DEPO-PROVERA [Concomitant]
  10. VICODIN [Concomitant]
  11. VICODIN [Concomitant]
     Indication: PAIN
  12. AMITRIPTYLINE HCL [Concomitant]

REACTIONS (20)
  - ATELECTASIS [None]
  - CYTOMEGALOVIRUS INFECTION [None]
  - FEELING COLD [None]
  - HEADACHE [None]
  - HYPERHIDROSIS [None]
  - HYPOXIA [None]
  - LUMBAR PUNCTURE HEADACHE [None]
  - LYMPHOCYTOSIS [None]
  - NAUSEA [None]
  - NEUTROPENIA [None]
  - PARAESTHESIA [None]
  - PERICARDIAL EFFUSION [None]
  - PETECHIAE [None]
  - PLEURAL FIBROSIS [None]
  - POSTURAL ORTHOSTATIC TACHYCARDIA SYNDROME [None]
  - RASH [None]
  - RED BLOOD CELL SEDIMENTATION RATE INCREASED [None]
  - SINUS TACHYCARDIA [None]
  - TENDERNESS [None]
  - WHITE BLOOD CELL COUNT DECREASED [None]
